FAERS Safety Report 22196746 (Version 1)
Quarter: 2023Q2

REPORT INFORMATION
  Report Type: Spontaneous
  Country: US (occurrence: None)
  Receive Date: 20230410
  Receipt Date: 20230410
  Transmission Date: 20230721
  Serious: No
  Sender: FDA-Public Use
  Company Number: None

PATIENT
  Age: 29 Year
  Sex: Male
  Weight: 94.5 kg

DRUGS (1)
  1. COSENTYX [Suspect]
     Active Substance: SECUKINUMAB
     Indication: Psoriasis
     Dosage: OTHER FREQUENCY : WKLY@ WK 0,1, 2, 3;?
     Route: 058
     Dates: start: 20230321

REACTIONS (4)
  - Illness [None]
  - Pyrexia [None]
  - Pain [None]
  - Productive cough [None]

NARRATIVE: CASE EVENT DATE: 20230406
